FAERS Safety Report 7731339-X (Version None)
Quarter: 2011Q3

REPORT INFORMATION
  Report Type: 
  Country: None (occurrence: None)
  Receive Date: 20110906
  Receipt Date: 20110630
  Transmission Date: 20111222
  Serious: Yes (Other)
  Sender: FDA-Public Use
  Company Number: US-AMGEN-USASP2011033755

PATIENT

DRUGS (4)
  1. XGEVA [Suspect]
     Indication: METASTASES TO BONE
     Dosage: 120 MG, Q4WK
  2. VITAMIN D [Concomitant]
  3. CHEMOTHERAPEUTICS [Concomitant]
  4. CALCIUM CARBONATE [Concomitant]

REACTIONS (1)
  - HYPOCALCAEMIA [None]
